FAERS Safety Report 20466445 (Version 1)
Quarter: 2022Q1

REPORT INFORMATION
  Report Type: Report from Study
  Country: FR (occurrence: FR)
  Receive Date: 20220213
  Receipt Date: 20220213
  Transmission Date: 20220423
  Serious: Yes (Death, Hospitalization, Other)
  Sender: FDA-Public Use
  Company Number: FR-BRISTOL-MYERS SQUIBB COMPANY-BMS-2022-019272

PATIENT
  Age: 58 Year
  Sex: Female

DRUGS (1)
  1. NIVOLUMAB [Suspect]
     Active Substance: NIVOLUMAB
     Indication: Non-small cell lung cancer
     Dosage: UNK
     Route: 065
     Dates: start: 2021, end: 2021

REACTIONS (6)
  - Pain [Fatal]
  - Malignant neoplasm progression [Fatal]
  - Metastases to meninges [Unknown]
  - Hallucination [Unknown]
  - Confusional state [Unknown]
  - Neurological symptom [Unknown]

NARRATIVE: CASE EVENT DATE: 20210101
